FAERS Safety Report 9590766 (Version 1)
Quarter: 2013Q4

REPORT INFORMATION
  Report Type: Spontaneous
  Country: US (occurrence: US)
  Receive Date: 20131003
  Receipt Date: 20131003
  Transmission Date: 20140711
  Serious: No
  Sender: FDA-Public Use
  Company Number: US-AMGEN-USASP2012076387

PATIENT
  Age: 58 Year
  Sex: Female

DRUGS (5)
  1. ENBREL [Suspect]
     Indication: RHEUMATOID ARTHRITIS
     Dosage: 50 MG, QWK
     Dates: start: 20110822, end: 20121008
  2. METHOTREXATE [Concomitant]
     Dosage: 20 MG, QWK
     Route: 048
  3. METHOTREXATE [Concomitant]
     Dosage: 10 MG, QWK
     Route: 048
  4. METHOTREXATE [Concomitant]
     Dosage: 12.5 MG, QWK
     Route: 048
  5. LEFLUNOMIDE [Concomitant]
     Dosage: 20 MG, QD
     Route: 048

REACTIONS (5)
  - Trigger finger [Not Recovered/Not Resolved]
  - Musculoskeletal stiffness [Not Recovered/Not Resolved]
  - Mobility decreased [Not Recovered/Not Resolved]
  - Therapeutic response decreased [Not Recovered/Not Resolved]
  - Injection site pain [Recovered/Resolved]
